FAERS Safety Report 6241104-0 (Version None)
Quarter: 2009Q2

REPORT INFORMATION
  Report Type: 
  Country: None (occurrence: None)
  Receive Date: 20090623
  Receipt Date: 20080611
  Transmission Date: 20091009
  Serious: No
  Sender: FDA-Public Use
  Company Number: US-BAYER-200812465BCC

PATIENT
  Sex: Female

DRUGS (1)
  1. MIDOL (NOT OTHERWISE SPECIFIED) [Suspect]
     Indication: DYSMENORRHOEA

REACTIONS (1)
  - BLOOD MAGNESIUM INCREASED [None]
